FAERS Safety Report 19972278 (Version 1)
Quarter: 2021Q4

REPORT INFORMATION
  Report Type: Spontaneous
  Country: US (occurrence: US)
  Receive Date: 20211019
  Receipt Date: 20211019
  Transmission Date: 20220303
  Serious: No
  Sender: FDA-Public Use
  Company Number: US-BAUSCH-BL-2021-026965

PATIENT
  Age: 54 Year
  Sex: Male

DRUGS (3)
  1. UCERIS [Suspect]
     Active Substance: BUDESONIDE
     Indication: Colitis ulcerative
     Route: 054
     Dates: start: 2020
  2. UCERIS [Suspect]
     Active Substance: BUDESONIDE
     Route: 054
     Dates: start: 20210801
  3. SULFASALAZINE [Concomitant]
     Active Substance: SULFASALAZINE
     Indication: Product used for unknown indication

REACTIONS (2)
  - Drug delivery system issue [Unknown]
  - Incorrect dose administered by device [Unknown]

NARRATIVE: CASE EVENT DATE: 20210801
